FAERS Safety Report 5057788-9 (Version None)
Quarter: 2006Q3

REPORT INFORMATION
  Report Type: 
  Country: None (occurrence: None)
  Receive Date: 20060721
  Receipt Date: 20060217
  Transmission Date: 20061208
  Serious: No
  Sender: FDA-Public Use
  Company Number: US-GLAXOSMITHKLINE-A0594146A

PATIENT
  Age: 56 Year
  Sex: Female

DRUGS (8)
  1. AVANDIA [Suspect]
     Route: 048
     Dates: end: 20051201
  2. GLUCOPHAGE [Suspect]
     Dates: end: 20051201
  3. XELODA [Concomitant]
  4. RED BLOOD CELLS [Concomitant]
  5. SYNTHROID [Concomitant]
  6. ZOLOFT [Concomitant]
  7. AVALIDE [Concomitant]
  8. PRAVACHOL [Concomitant]

REACTIONS (1)
  - BLOOD GLUCOSE INCREASED [None]
